FAERS Safety Report 23745093 (Version 1)
Quarter: 2024Q2

REPORT INFORMATION
  Report Type: Spontaneous
  Country: FR (occurrence: FR)
  Receive Date: 20240416
  Receipt Date: 20240416
  Transmission Date: 20240715
  Serious: Yes (Other)
  Sender: FDA-Public Use
  Company Number: None

PATIENT
  Age: 55 Year
  Sex: Female
  Weight: 58 kg

DRUGS (2)
  1. PREDNISOLONE [Suspect]
     Active Substance: PREDNISOLONE
     Indication: Tracheitis
     Dosage: 2 TABS MORNING (40MG)?1 TAB EVENING (20 MG)
     Route: 048
     Dates: start: 20231225, end: 20231230
  2. HERBALS [Suspect]
     Active Substance: HERBALS
     Indication: Tracheitis
     Dosage: 1 TABLESPOON 2 TO 3 TIMES A DAY
     Route: 048
     Dates: start: 20231228, end: 20231229

REACTIONS (1)
  - Pancreatitis acute [Recovering/Resolving]

NARRATIVE: CASE EVENT DATE: 20231231
